FAERS Safety Report 10420618 (Version 1)
Quarter: 2014Q3

REPORT INFORMATION
  Report Type: Spontaneous
  Country: US (occurrence: None)
  Receive Date: 20140828
  Receipt Date: 20140828
  Transmission Date: 20150326
  Serious: Yes (Hospitalization)
  Sender: FDA-Public Use
  Company Number: None

PATIENT
  Age: 46 Year
  Sex: Female
  Weight: 61.24 kg

DRUGS (1)
  1. VIVITROL [Suspect]
     Active Substance: NALTREXONE
     Indication: ALCOHOLISM
     Dosage: 1 SHOT EVERY 28 DAYS, INTO THE MUSCLE?
     Route: 030
     Dates: start: 20140711

REACTIONS (2)
  - Abscess [None]
  - Impaired healing [None]

NARRATIVE: CASE EVENT DATE: 20140710
